FAERS Safety Report 22764361 (Version 5)
Quarter: 2023Q4

REPORT INFORMATION
  Report Type: Report from Study
  Country: JP (occurrence: JP)
  Receive Date: 20230731
  Receipt Date: 20231218
  Transmission Date: 20240110
  Serious: Yes (Other)
  Sender: FDA-Public Use
  Company Number: JP-TAKEDA-2023TJP009265

PATIENT
  Age: 57 Year
  Sex: Male

DRUGS (19)
  1. TEDUGLUTIDE [Suspect]
     Active Substance: TEDUGLUTIDE
     Indication: Short-bowel syndrome
     Dosage: UNK
     Route: 058
  2. TEDUGLUTIDE [Suspect]
     Active Substance: TEDUGLUTIDE
     Indication: Short-bowel syndrome
     Dosage: UNK
     Route: 058
  3. TEDUGLUTIDE [Suspect]
     Active Substance: TEDUGLUTIDE
     Indication: Short-bowel syndrome
     Dosage: UNK
     Route: 058
  4. TEDUGLUTIDE [Suspect]
     Active Substance: TEDUGLUTIDE
     Indication: Short-bowel syndrome
     Dosage: UNK
     Route: 058
  5. TEDUGLUTIDE [Suspect]
     Active Substance: TEDUGLUTIDE
     Dosage: UNK
     Route: 058
  6. TEDUGLUTIDE [Suspect]
     Active Substance: TEDUGLUTIDE
     Dosage: UNK
     Route: 058
  7. TEDUGLUTIDE [Suspect]
     Active Substance: TEDUGLUTIDE
     Dosage: UNK
     Route: 058
  8. TEDUGLUTIDE [Suspect]
     Active Substance: TEDUGLUTIDE
     Dosage: UNK
     Route: 058
  9. VONOPRAZAN FUMARATE [Concomitant]
     Active Substance: VONOPRAZAN FUMARATE
     Dosage: UNK
     Route: 065
  10. LOPEMIN [Concomitant]
     Dosage: UNK
     Route: 065
  11. PAPAVER SOMNIFERUM TINCTURE [Concomitant]
     Dosage: UNK
     Route: 065
  12. STELARA [Concomitant]
     Active Substance: USTEKINUMAB
     Dosage: UNK
     Route: 065
  13. MIYA-BM [Concomitant]
     Active Substance: CLOSTRIDIUM BUTYRICUM SPORES STRAIN M-55
     Dosage: UNK
     Route: 065
  14. ETIZOLAM [Concomitant]
     Active Substance: ETIZOLAM
     Dosage: UNK
     Route: 065
  15. MICARDIS [Concomitant]
     Active Substance: TELMISARTAN
     Dosage: UNK
     Route: 065
  16. CALBLOCK [Concomitant]
     Active Substance: AZELNIDIPINE
     Dosage: UNK
     Route: 065
  17. CALONAL [Concomitant]
     Active Substance: ACETAMINOPHEN
     Dosage: UNK
     Route: 065
  18. ACOTIAMIDE HYDROCHLORIDE [Concomitant]
     Active Substance: ACOTIAMIDE HYDROCHLORIDE
     Dosage: UNK
     Route: 065
  19. ELNEOPA NF NO.1 [Concomitant]
     Dosage: UNK
     Route: 065

REACTIONS (14)
  - Sepsis [Unknown]
  - Dehydration [Recovered/Resolved]
  - Malaise [Recovered/Resolved]
  - Diarrhoea [Unknown]
  - Product dose omission issue [Recovered/Resolved]
  - Malaise [Unknown]
  - Diarrhoea [Unknown]
  - Physical deconditioning [Unknown]
  - Administration site induration [Unknown]
  - Injection site pain [Unknown]
  - Injection site haemorrhage [Unknown]
  - Abdominal distension [Recovered/Resolved]
  - Insomnia [Recovered/Resolved]
  - Injection site bruising [Unknown]

NARRATIVE: CASE EVENT DATE: 20210901
